FAERS Safety Report 8956467 (Version 2)
Quarter: 2012Q4

REPORT INFORMATION
  Report Type: 
  Country: US (occurrence: US)
  Receive Date: 20121210
  Receipt Date: 20121211
  Transmission Date: 20130627
  Serious: Yes (Death)
  Sender: FDA-Public Use
  Company Number: US-ASTRAZENECA-2012SE91999

PATIENT
  Age: 196 Day
  Sex: Male

DRUGS (8)
  1. SYNAGIS [Suspect]
     Dosage: ONE DOSE
     Route: 030
     Dates: start: 20121023
  2. LASIX [Concomitant]
  3. POLY-VI-SOL [Concomitant]
  4. ALBUTEROL [Concomitant]
  5. ATROVENT [Concomitant]
  6. ZANTAC [Concomitant]
  7. BACTRIM [Concomitant]
  8. VIAGRA [Concomitant]

REACTIONS (1)
  - Anomalous pulmonary venous connection [Fatal]
